FAERS Safety Report 17106032 (Version 1)
Quarter: 2019Q4

REPORT INFORMATION
  Report Type: Spontaneous
  Country: DE (occurrence: DE)
  Receive Date: 20191203
  Receipt Date: 20191203
  Transmission Date: 20200122
  Serious: Yes (Hospitalization)
  Sender: FDA-Public Use
  Company Number: DE-MYLANLABS-2019M1116742

PATIENT
  Age: 54 Year
  Sex: Male

DRUGS (17)
  1. GLIMEPIRIDE. [Concomitant]
     Active Substance: GLIMEPIRIDE
     Dosage: 3 MILLIGRAM, 1-0-0-0
  2. OMEPRAZOL                          /00661201/ [Concomitant]
     Active Substance: OMEPRAZOLE
     Dosage: 20 MILLIGRAM, 1-0-0-0
  3. MORPHIN                            /00036303/ [Concomitant]
     Active Substance: MORPHINE
     Dosage: 5 MILLIGRAM, BEDARF
     Route: 058
  4. ASPIRIN. [Concomitant]
     Active Substance: ASPIRIN
     Dosage: 100 MILLIGRAM, (1-0-0-0)
  5. MORPHIN                            /00036303/ [Concomitant]
     Active Substance: MORPHINE
     Dosage: 30 MILLIGRAM, (1-1-0-1 )
  6. COLECALCIFEROL [Concomitant]
     Active Substance: CHOLECALCIFEROL
     Dosage: 20000 INTERNATIONAL UNIT, 1X/WOCHE
  7. METHOTREXATE. [Suspect]
     Active Substance: METHOTREXATE
     Indication: PRODUCT USED FOR UNKNOWN INDICATION
     Dosage: 20 MILLIGRAM, 1X/WOCHE; FREITAGS
     Route: 058
  8. ESKETAMINE [Concomitant]
     Active Substance: ESKETAMINE
     Dosage: 10 MILLIGRAM, BEDARF
     Route: 058
  9. METFORMIN W/SITAGLIPTIN [Concomitant]
     Active Substance: METFORMIN\SITAGLIPTIN PHOSPHATE
     Dosage: 50/1000 MG, 1-0-1-0
  10. METOPROLOL. [Concomitant]
     Active Substance: METOPROLOL
     Dosage: 47.5 MILLIGRAM, 1-0-1-0
  11. FOLIC ACID. [Concomitant]
     Active Substance: FOLIC ACID
     Dosage: 5 MG, 1X/WOCHE; SAMSTAGS
  12. FUROSEMID                          /00032601/ [Concomitant]
     Active Substance: FUROSEMIDE
     Dosage: 40 MILLIGRAM, 1-0-0-0
  13. ETORICOXIB. [Concomitant]
     Active Substance: ETORICOXIB
     Dosage: 90 MILLIGRAM, 1-0-0-0
  14. AMLODIPINE MESILATE W/OLMESARTAN MEDOXOMIL [Concomitant]
     Dosage: 40/5 MG, 1-0-1-0
  15. PREDNISOLONE. [Suspect]
     Active Substance: PREDNISOLONE
     Indication: PRODUCT USED FOR UNKNOWN INDICATION
     Dosage: 2 MILLIGRAM, 1-0-0-0
  16. NATRIUMPICOSULFAT [Concomitant]
     Dosage: UNK, NK MG, 0-0-16, TROPFEN
  17. ATORVASTATIN [Concomitant]
     Active Substance: ATORVASTATIN
     Dosage: 20 MILLIGRAM, 0-1-0-0

REACTIONS (1)
  - Spinal pain [Unknown]

NARRATIVE: CASE EVENT DATE: 20171119
